FAERS Safety Report 9070469 (Version 1)
Quarter: 2013Q1

REPORT INFORMATION
  Report Type: Spontaneous
  Country: US (occurrence: US)
  Receive Date: 20130215
  Receipt Date: 20130215
  Transmission Date: 20140127
  Serious: Yes (Other)
  Sender: FDA-Public Use
  Company Number: PHEH2013US003652

PATIENT
  Age: 60 Year
  Sex: Female
  Weight: 154 kg

DRUGS (5)
  1. ZOMETA [Suspect]
     Indication: PLASMA CELL MYELOMA
     Dosage: UNK UKN, UNK
  2. ANASTROZOL [Concomitant]
  3. GEMFIBROZIL [Concomitant]
  4. METFORMIN [Concomitant]
     Dosage: UNK UKN, UNK
  5. REVLIMID [Concomitant]

REACTIONS (2)
  - Breast cancer [Unknown]
  - Second primary malignancy [Unknown]
